FAERS Safety Report 4720476-X (Version None)
Quarter: 2005Q3

REPORT INFORMATION
  Report Type: 
  Country: None (occurrence: None)
  Receive Date: 20050721
  Receipt Date: 20040728
  Transmission Date: 20060218
  Serious: No
  Sender: FDA-Public Use
  Company Number: US-BRISTOL-MYERS SQUIBB COMPANY-12658282

PATIENT
  Age: 72 Year
  Sex: Female

DRUGS (1)
  1. GLUCOVANCE [Suspect]
     Indication: DIABETES MELLITUS
     Dosage: DURATION OF THERAPY: 2-3 YEARS; DOSAGE FORM = ONE 1.25GM/250MG TABLET
     Route: 048

REACTIONS (2)
  - HYPERCHLORHYDRIA [None]
  - INSOMNIA [None]
